FAERS Safety Report 6844717-8 (Version None)
Quarter: 2010Q3

REPORT INFORMATION
  Report Type: 
  Country: None (occurrence: None)
  Receive Date: 20100715
  Receipt Date: 20100712
  Transmission Date: 20110219
  Serious: Yes (Disabling)
  Sender: FDA-Public Use
  Company Number: AU-BRISTOL-MYERS SQUIBB COMPANY-15051618

PATIENT
  Age: 65 Year
  Sex: Female
  Weight: 65 kg

DRUGS (6)
  1. AVAPRO [Suspect]
     Indication: HYPERTENSION
     Route: 048
  2. PROBITOR [Concomitant]
     Dosage: FORM:CAPSULES
  3. PRILOSEC [Concomitant]
     Route: 048
  4. SERETIDE [Concomitant]
  5. VENTOLIN [Concomitant]
  6. CLARATYNE [Concomitant]
     Route: 048

REACTIONS (6)
  - CHOKING [None]
  - DYSPHAGIA [None]
  - FEELING HOT [None]
  - MALAISE [None]
  - MULTIPLE CHEMICAL SENSITIVITY [None]
  - MUSCLE SPASMS [None]
